FAERS Safety Report 14067410 (Version 1)
Quarter: 2017Q4

REPORT INFORMATION
  Report Type: Spontaneous
  Country: US (occurrence: US)
  Receive Date: 20171008
  Receipt Date: 20171008
  Transmission Date: 20180321
  Serious: Yes (Disabling)
  Sender: FDA-Public Use
  Company Number: None

PATIENT
  Sex: Female

DRUGS (2)
  1. CIPROFLOXACIN. [Suspect]
     Active Substance: CIPROFLOXACIN
     Indication: BLOOD URINE PRESENT
     Dosage: ?          OTHER STRENGTH:500 MG;QUANTITY:1 TABLET(S);?
     Route: 048
     Dates: start: 20170804, end: 20170813
  2. CIPRODEX [Suspect]
     Active Substance: CIPROFLOXACIN HYDROCHLORIDE\DEXAMETHASONE
     Indication: EAR DISORDER
     Dosage: ?          OTHER STRENGTH:COPRODEX OT 7.5ML;QUANTITY:4 DROP(S);?
     Route: 001
     Dates: start: 20170910, end: 20170913

REACTIONS (11)
  - Dizziness [None]
  - Fatigue [None]
  - Stress [None]
  - Tinnitus [None]
  - Ear discomfort [None]
  - Hypoaesthesia [None]
  - Nervous system disorder [None]
  - Balance disorder [None]
  - Ear infection [None]
  - Memory impairment [None]
  - Hypoacusis [None]

NARRATIVE: CASE EVENT DATE: 20170910
